APPROVED DRUG PRODUCT: LACTULOSE
Active Ingredient: LACTULOSE
Strength: 10GM/15ML
Dosage Form/Route: SOLUTION;ORAL
Application: A073160 | Product #001
Applicant: PACO PHARMACEUTICAL SERVICES INC
Approved: Aug 25, 1992 | RLD: No | RS: No | Type: DISCN